FAERS Safety Report 5515747-3 (Version None)
Quarter: 2007Q4

REPORT INFORMATION
  Report Type: 
  Country: None (occurrence: None)
  Receive Date: 20071114
  Receipt Date: 20071105
  Transmission Date: 20080405
  Serious: Yes (Other)
  Sender: FDA-Public Use
  Company Number: PHBS2007JP17822

PATIENT
  Age: 11 Year
  Sex: Male
  Weight: 41 kg

DRUGS (6)
  1. DICLOFENAC SODIUM [Suspect]
     Indication: POSTOPERATIVE ANALGESIA
     Dosage: 50 MG/D
     Route: 054
  2. OXYGEN [Concomitant]
  3. NITROUS OXIDE [Concomitant]
  4. SEVOFLURANE [Concomitant]
  5. NORADRENALINE [Concomitant]
     Dosage: 0.05 UG/KG/MIN
  6. PROPOFOL [Concomitant]

REACTIONS (5)
  - BLOOD PRESSURE DECREASED [None]
  - CIRCULATORY COLLAPSE [None]
  - DEPRESSED LEVEL OF CONSCIOUSNESS [None]
  - HEART RATE DECREASED [None]
  - TACHYCARDIA [None]
